FAERS Safety Report 18717909 (Version 1)
Quarter: 2021Q1

REPORT INFORMATION
  Report Type: Spontaneous
  Country: JP (occurrence: JP)
  Receive Date: 20210108
  Receipt Date: 20210108
  Transmission Date: 20210419
  Serious: Yes (Other)
  Sender: FDA-Public Use
  Company Number: JP-ACACIA PHARMA LIMITED-2104119

PATIENT

DRUGS (2)
  1. BYFAVO [Suspect]
     Active Substance: REMIMAZOLAM BESYLATE
     Indication: MAINTENANCE OF ANAESTHESIA
     Route: 042
  2. FLUID BICARBONATE RINGER^S SOLUTION [Concomitant]
     Route: 042

REACTIONS (1)
  - Vascular access site occlusion [Unknown]
